FAERS Safety Report 8616761-1 (Version None)
Quarter: 2012Q3

REPORT INFORMATION
  Report Type: 
  Country: None (occurrence: None)
  Receive Date: 20120823
  Receipt Date: 20120806
  Transmission Date: 20120928
  Serious: No
  Sender: FDA-Public Use
  Company Number: US-009507513-1208USA003189

PATIENT

DRUGS (6)
  1. FLEXERIL [Concomitant]
  2. FIORINAL (ACETAMINOPHEN (+) ASPIRIN (+) CAFFEINE) [Concomitant]
  3. CELEXA [Concomitant]
  4. SYNTHROID [Concomitant]
  5. SAPHRIS [Suspect]
     Indication: BIPOLAR DISORDER
     Dosage: 5 MG, QD
     Route: 060
     Dates: start: 20120731, end: 20120804
  6. XANAX [Concomitant]

REACTIONS (4)
  - MEDICATION ERROR [None]
  - NIGHTMARE [None]
  - AGITATION [None]
  - INSOMNIA [None]
